FAERS Safety Report 5615353-6 (Version None)
Quarter: 2008Q1

REPORT INFORMATION
  Report Type: 
  Country: None (occurrence: None)
  Receive Date: 20080206
  Receipt Date: 20080128
  Transmission Date: 20080703
  Serious: Yes (Other)
  Sender: FDA-Public Use
  Company Number: US-WYE-H02331308

PATIENT
  Sex: Female

DRUGS (1)
  1. LYBREL [Suspect]
     Dosage: ^ACCORDING TO LABEL^
     Route: 065

REACTIONS (2)
  - ENDOMETRIAL HYPERTROPHY [None]
  - MENOMETRORRHAGIA [None]
